FAERS Safety Report 17683511 (Version 3)
Quarter: 2021Q2

REPORT INFORMATION
  Report Type: Spontaneous
  Country: US (occurrence: US)
  Receive Date: 20200420
  Receipt Date: 20210414
  Transmission Date: 20210716
  Serious: Yes (Hospitalization, Other)
  Sender: FDA-Public Use
  Company Number: US-ASTRAZENECA-2020SE50619

PATIENT
  Age: 16427 Day
  Sex: Female
  Weight: 110.7 kg

DRUGS (87)
  1. FUROSEMIDE. [Concomitant]
     Active Substance: FUROSEMIDE
     Indication: SWELLING
     Dates: start: 199811, end: 201606
  2. IBUPROFEN. [Concomitant]
     Active Substance: IBUPROFEN
     Indication: PAIN
     Dates: start: 199907, end: 201306
  3. AZITHROMYCIN ANHYDROUS. [Concomitant]
     Active Substance: AZITHROMYCIN ANHYDROUS
     Indication: INFECTION
     Dates: start: 201011, end: 201201
  4. MEDROXYPROGESTERONE [Concomitant]
     Active Substance: MEDROXYPROGESTERONE
  5. MACROBID [Concomitant]
     Active Substance: NITROFURANTOIN\NITROFURANTOIN MONOHYDRATE
  6. ALLOPURINOL. [Concomitant]
     Active Substance: ALLOPURINOL
  7. ROXICODONE [Concomitant]
     Active Substance: OXYCODONE HYDROCHLORIDE
  8. AZITHROMYCIN ANHYDROUS. [Concomitant]
     Active Substance: AZITHROMYCIN ANHYDROUS
  9. PROMETHAZINE [Concomitant]
     Active Substance: PROMETHAZINE HYDROCHLORIDE
  10. CLOTRIMAZOLE. [Concomitant]
     Active Substance: CLOTRIMAZOLE
  11. PRILOSEC [Suspect]
     Active Substance: OMEPRAZOLE MAGNESIUM
     Indication: GASTROOESOPHAGEAL REFLUX DISEASE
     Route: 048
     Dates: start: 2009
  12. PRILOSEC OTC [Suspect]
     Active Substance: OMEPRAZOLE MAGNESIUM
     Indication: GASTROOESOPHAGEAL REFLUX DISEASE
     Route: 048
     Dates: start: 200104, end: 201612
  13. LEVOFLOXACIN. [Concomitant]
     Active Substance: LEVOFLOXACIN
     Indication: INFECTION
     Dates: start: 201304, end: 201404
  14. ZAROXOLYN [Concomitant]
     Active Substance: METOLAZONE
  15. WELLBUTRIN [Concomitant]
     Active Substance: BUPROPION HYDROCHLORIDE
  16. CELEBREX [Concomitant]
     Active Substance: CELECOXIB
  17. MULTIVITAMINS [Concomitant]
     Active Substance: VITAMINS
  18. METRONIDAZOLE. [Concomitant]
     Active Substance: METRONIDAZOLE
  19. FOSINOPRIL [Concomitant]
     Active Substance: FOSINOPRIL
  20. ATORVASTATIN [Concomitant]
     Active Substance: ATORVASTATIN
     Indication: BLOOD CHOLESTEROL ABNORMAL
     Dates: start: 201510, end: 201604
  21. HYDROCODONE BITARTRATE AND ACETAMINOPHEN [Concomitant]
     Active Substance: ACETAMINOPHEN\HYDROCODONE BITARTRATE
  22. ALPRAZOLAM. [Concomitant]
     Active Substance: ALPRAZOLAM
  23. INDOMETHACIN. [Concomitant]
     Active Substance: INDOMETHACIN
  24. SPIRONOLACTONE. [Concomitant]
     Active Substance: SPIRONOLACTONE
  25. FLONASE [Concomitant]
     Active Substance: FLUTICASONE PROPIONATE
  26. AMBIEN [Concomitant]
     Active Substance: ZOLPIDEM TARTRATE
  27. ASPIRIN. [Concomitant]
     Active Substance: ASPIRIN
  28. MORPHINE [Concomitant]
     Active Substance: MORPHINE
  29. TOPAMAX [Concomitant]
     Active Substance: TOPIRAMATE
  30. TUSSIONEX PENNKINETIC [Concomitant]
     Active Substance: CHLORPHENIRAMINE\HYDROCODONE
  31. CELEXA [Concomitant]
     Active Substance: CITALOPRAM HYDROBROMIDE
  32. CLINDAMYCIN. [Concomitant]
     Active Substance: CLINDAMYCIN
  33. ZINC OXIDE. [Concomitant]
     Active Substance: ZINC OXIDE
  34. SINEMET [Concomitant]
     Active Substance: CARBIDOPA\LEVODOPA
  35. LINZESS [Concomitant]
     Active Substance: LINACLOTIDE
  36. ALBUTEROL. [Concomitant]
     Active Substance: ALBUTEROL
  37. CEPHALEXIN. [Concomitant]
     Active Substance: CEPHALEXIN
  38. RENAGEL [Concomitant]
     Active Substance: SEVELAMER HYDROCHLORIDE
  39. PRILOSEC [Suspect]
     Active Substance: OMEPRAZOLE MAGNESIUM
     Indication: GASTROOESOPHAGEAL REFLUX DISEASE
     Dosage: GENERIC
     Route: 065
     Dates: start: 2009
  40. PRILOSEC OTC [Suspect]
     Active Substance: OMEPRAZOLE MAGNESIUM
     Indication: GASTROOESOPHAGEAL REFLUX DISEASE
     Route: 048
     Dates: start: 2006, end: 2008
  41. PROTONIX [Suspect]
     Active Substance: PANTOPRAZOLE SODIUM
     Indication: GASTROOESOPHAGEAL REFLUX DISEASE
     Route: 065
     Dates: start: 200104, end: 201612
  42. CIPROFLOXACIN. [Concomitant]
     Active Substance: CIPROFLOXACIN
     Indication: INFECTION
     Dates: start: 201308
  43. ALLEGRA [Concomitant]
     Active Substance: FEXOFENADINE HYDROCHLORIDE
  44. TOBRAMYCIN. [Concomitant]
     Active Substance: TOBRAMYCIN
  45. MIRAPEX [Concomitant]
     Active Substance: PRAMIPEXOLE DIHYDROCHLORIDE
  46. GABAPENTIN. [Concomitant]
     Active Substance: GABAPENTIN
  47. GEODON [Concomitant]
     Active Substance: ZIPRASIDONE HYDROCHLORIDE\ZIPRASIDONE MESYLATE
  48. RELISTOR [Concomitant]
     Active Substance: METHYLNALTREXONE BROMIDE
  49. AZACTAM [Concomitant]
     Active Substance: AZTREONAM
  50. PRILOSEC [Suspect]
     Active Substance: OMEPRAZOLE MAGNESIUM
     Indication: GASTROOESOPHAGEAL REFLUX DISEASE
     Route: 048
     Dates: start: 200104, end: 201612
  51. SIMVASTATIN. [Concomitant]
     Active Substance: SIMVASTATIN
     Indication: BLOOD CHOLESTEROL ABNORMAL
     Dates: start: 201002, end: 201210
  52. SINGULAIR [Concomitant]
     Active Substance: MONTELUKAST SODIUM
  53. AMANTADINE. [Concomitant]
     Active Substance: AMANTADINE HYDROCHLORIDE
  54. SPIRONOLACTONE. [Concomitant]
     Active Substance: SPIRONOLACTONE
  55. DETROL [Concomitant]
     Active Substance: TOLTERODINE TARTRATE
  56. CORTOMYCIN [Concomitant]
     Active Substance: BACITRACIN ZINC\HYDROCORTISONE\NEOMYCIN SULFATE\POLYMYXIN B SULFATE
  57. PRAVACHOL [Concomitant]
     Active Substance: PRAVASTATIN SODIUM
  58. TRIAMCINOLONE [Concomitant]
     Active Substance: TRIAMCINOLONE
  59. AMITRIPTYLINE [Concomitant]
     Active Substance: AMITRIPTYLINE
  60. VALIUM [Concomitant]
     Active Substance: DIAZEPAM
  61. PROTONIX [Suspect]
     Active Substance: PANTOPRAZOLE SODIUM
     Indication: GASTROOESOPHAGEAL REFLUX DISEASE
     Route: 065
     Dates: start: 2001, end: 2002
  62. SULFAMETHOXAZOLE/TMP [Concomitant]
     Active Substance: SULFAMETHOXAZOLE\TRIMETHOPRIM
     Indication: INFECTION
     Dates: start: 201202, end: 201503
  63. SIMETHICONE (DIMETHICONE) [Concomitant]
     Active Substance: DIMETHICONE
  64. NAPROXEN. [Concomitant]
     Active Substance: NAPROXEN
  65. MECLIZINE [Concomitant]
     Active Substance: MECLIZINE HYDROCHLORIDE
  66. DOCUSATE [Concomitant]
     Active Substance: DOCUSATE
  67. TRAZODONE [Concomitant]
     Active Substance: TRAZODONE HYDROCHLORIDE
  68. ZOLOFT [Concomitant]
     Active Substance: SERTRALINE HYDROCHLORIDE
  69. CHANTIX [Concomitant]
     Active Substance: VARENICLINE TARTRATE
  70. LORAZEPAM. [Concomitant]
     Active Substance: LORAZEPAM
  71. LORATADINE. [Concomitant]
     Active Substance: LORATADINE
  72. VIIBRYD [Concomitant]
     Active Substance: VILAZODONE HYDROCHLORIDE
  73. DULCOLAX NOS [Concomitant]
     Active Substance: BISACODYL OR DOCUSATE SODIUM
  74. MYCOSTATIN [Concomitant]
     Active Substance: NYSTATIN
  75. PAXIL [Concomitant]
     Active Substance: PAROXETINE HYDROCHLORIDE
  76. LOPERAMIDE [Concomitant]
     Active Substance: LOPERAMIDE
  77. QUININE SULFATE. [Concomitant]
     Active Substance: QUININE SULFATE
  78. TEMAZEPAM. [Concomitant]
     Active Substance: TEMAZEPAM
  79. DIFLUCAN [Concomitant]
     Active Substance: FLUCONAZOLE
  80. LOTENSIN [Concomitant]
     Active Substance: BENAZEPRIL HYDROCHLORIDE
  81. REMERON [Concomitant]
     Active Substance: MIRTAZAPINE
  82. SENNA [Concomitant]
     Active Substance: SENNA LEAF\SENNOSIDES\SENNOSIDES A AND B
  83. BUDESONIDE. [Concomitant]
     Active Substance: BUDESONIDE
  84. NIASPAN [Concomitant]
     Active Substance: NIACIN
  85. MELATONIN [Concomitant]
     Active Substance: MELATONIN
  86. REGLAN [Concomitant]
     Active Substance: METOCLOPRAMIDE HYDROCHLORIDE
  87. VANCOCIN [Concomitant]
     Active Substance: VANCOMYCIN HYDROCHLORIDE

REACTIONS (8)
  - Dyspnoea [Unknown]
  - Acute kidney injury [Not Recovered/Not Resolved]
  - Metabolic acidosis [Unknown]
  - Renal failure [Unknown]
  - Chronic kidney disease [Not Recovered/Not Resolved]
  - End stage renal disease [Not Recovered/Not Resolved]
  - Respiratory acidosis [Unknown]
  - Ventricular extrasystoles [Unknown]

NARRATIVE: CASE EVENT DATE: 20080909
